FAERS Safety Report 4555077-X (Version None)
Quarter: 2005Q1

REPORT INFORMATION
  Report Type: 
  Country: None (occurrence: None)
  Receive Date: 20041228
  Receipt Date: 20040409
  Transmission Date: 20050727
  Serious: Yes (Other)
  Sender: FDA-Public Use
  Company Number: PHEH2004US04091

PATIENT
  Age: 27 Year
  Sex: Female

DRUGS (9)
  1. AREDIA [Suspect]
     Dosage: 90 MG/OVER 1 HOUR
     Dates: start: 20010126, end: 20020524
  2. ZOMETA [Suspect]
     Dosage: 4MG OVER 15 MINUTES
     Dates: start: 20020621, end: 20030820
  3. EPOETIN ALFA (EPOETIN ALFA) [Concomitant]
  4. GEMCITABINE (GEMCITABINE) [Concomitant]
  5. TAXOL [Concomitant]
  6. DEXAMETHASONE SODIUM PHOSPHATE [Concomitant]
  7. DIPHENHYDRAMINE HCL [Concomitant]
  8. GRANISETRON (GRANISETRON) [Concomitant]
  9. RANITIDINE HYDROCHLORIDE [Concomitant]

REACTIONS (4)
  - BONE DEBRIDEMENT [None]
  - OSTEONECROSIS [None]
  - TOOTH EXTRACTION [None]
  - WOUND TREATMENT [None]
